FAERS Safety Report 7258203 (Version 3)
Quarter: 2012Q4

REPORT INFORMATION
  Report Type: 
  Country: JP (occurrence: JP)
  Receive Date: 20100127
  Receipt Date: 20121016
  Transmission Date: 20130627
  Serious: Yes (Life-Threatening, Other)
  Sender: FDA-Public Use
  Company Number: JP-ROCHE-607095

PATIENT
  Age: 72 Year
  Sex: Female

DRUGS (10)
  1. TOCILIZUMAB [Suspect]
     Indication: RHEUMATOID ARTHRITIS
     Route: 041
     Dates: start: 20080925, end: 20080925
  2. TOCILIZUMAB [Suspect]
     Route: 041
     Dates: start: 20081023, end: 20081023
  3. TOCILIZUMAB [Suspect]
     Route: 041
     Dates: start: 20081120, end: 20081120
  4. TOCILIZUMAB [Suspect]
     Route: 041
     Dates: start: 20081218, end: 20081218
  5. METHOTREXATE [Suspect]
     Indication: RHEUMATOID ARTHRITIS
     Route: 048
     Dates: start: 200409, end: 20081225
  6. PREDNISONE [Suspect]
     Indication: RHEUMATOID ARTHRITIS
     Route: 048
  7. ALFAROL [Concomitant]
     Route: 048
  8. VOLTAREN SR [Concomitant]
     Dosage: FORM: SUSTAINED RELEASE CAPSULE.
     Route: 048
  9. FOLIAMIN [Concomitant]
     Dosage: FORM: ORAL FORMULATION (NOT OTHERWISE SPECIFIED)
     Route: 048
  10. TAGAMET [Concomitant]
     Dosage: FORM: ORAL FORMULATION (NOT OTHERWISE SPECIFIED)
     Route: 048

REACTIONS (6)
  - Pneumonia bacterial [Recovered/Resolved]
  - Acute respiratory distress syndrome [Recovering/Resolving]
  - Septic shock [Recovered/Resolved]
  - Pneumocystis jiroveci pneumonia [Recovering/Resolving]
  - Pneumonia [Unknown]
  - Pulmonary mycosis [Unknown]
